FAERS Safety Report 17230333 (Version 9)
Quarter: 2020Q3

REPORT INFORMATION
  Report Type: Report from Study
  Country: US (occurrence: US)
  Receive Date: 20200103
  Receipt Date: 20200805
  Transmission Date: 20201102
  Serious: Yes (Other)
  Sender: FDA-Public Use
  Company Number: NVSC2020US000666

PATIENT
  Age: 77 Year
  Sex: Female

DRUGS (18)
  1. BEOVU [Suspect]
     Active Substance: BROLUCIZUMAB-DBLL
     Dosage: UNK
     Route: 047
     Dates: start: 20191220
  2. EYLEA [Suspect]
     Active Substance: AFLIBERCEPT
     Dosage: UNK (LEFT EYE)
     Route: 031
     Dates: start: 20190920
  3. EYLEA [Suspect]
     Active Substance: AFLIBERCEPT
     Dosage: UNK
     Route: 031
     Dates: start: 20200506
  4. EYLEA [Suspect]
     Active Substance: AFLIBERCEPT
     Dosage: UNK
     Route: 031
     Dates: start: 20200612
  5. EYLEA [Suspect]
     Active Substance: AFLIBERCEPT
     Dosage: UNK
     Route: 031
     Dates: start: 20200710
  6. EYLEA [Suspect]
     Active Substance: AFLIBERCEPT
     Dosage: UNK
     Route: 031
     Dates: start: 20200410
  7. BEOVU [Suspect]
     Active Substance: BROLUCIZUMAB-DBLL
     Indication: NEOVASCULAR AGE-RELATED MACULAR DEGENERATION
     Dosage: 6 MG, QMO (FORMULATION VIAL) 32 G NEEDLE
     Route: 047
     Dates: start: 20191122
  8. EYLEA [Suspect]
     Active Substance: AFLIBERCEPT
     Dosage: UNK (LEFT EYE)
     Route: 031
     Dates: start: 20191101
  9. EYLEA [Suspect]
     Active Substance: AFLIBERCEPT
     Dosage: UNK (LEFT EYE)
     Route: 031
     Dates: start: 20190719
  10. EYLEA [Suspect]
     Active Substance: AFLIBERCEPT
     Dosage: UNK (LEFT EYE)
     Route: 031
     Dates: start: 20190809
  11. EYLEA [Suspect]
     Active Substance: AFLIBERCEPT
     Dosage: UNK (LEFT EYE)
     Route: 031
     Dates: start: 20191011
  12. EYLEA [Suspect]
     Active Substance: AFLIBERCEPT
     Dosage: UNK (LEFT EYE)
     Route: 031
     Dates: start: 20191101
  13. BEOVU [Suspect]
     Active Substance: BROLUCIZUMAB-DBLL
     Dosage: 6 MG, QMO
     Route: 047
     Dates: end: 20200117
  14. EYLEA [Suspect]
     Active Substance: AFLIBERCEPT
     Dosage: UNK (LEFT EYE)
     Route: 031
     Dates: start: 20190830
  15. EYLEA [Suspect]
     Active Substance: AFLIBERCEPT
     Indication: PRODUCT USED FOR UNKNOWN INDICATION
     Dosage: UNK (LEFT EYE)
     Route: 031
     Dates: start: 20190628
  16. EYLEA [Suspect]
     Active Substance: AFLIBERCEPT
     Dosage: UNK (RESTARTED)
     Route: 031
     Dates: start: 20200306
  17. EYLEA [Suspect]
     Active Substance: AFLIBERCEPT
     Dosage: UNK
     Route: 031
     Dates: start: 20200320
  18. EYLEA [Suspect]
     Active Substance: AFLIBERCEPT
     Dosage: UNK
     Route: 031
     Dates: start: 20200522

REACTIONS (8)
  - Eye inflammation [Unknown]
  - Vision blurred [Recovered/Resolved]
  - Vitritis [Recovered/Resolved]
  - Visual acuity reduced [Unknown]
  - Visual impairment [Recovered/Resolved]
  - Retinal artery occlusion [Recovered/Resolved]
  - Retinal vasculitis [Recovered/Resolved]
  - Vitreous floaters [Unknown]

NARRATIVE: CASE EVENT DATE: 20200221
